FAERS Safety Report 9798764 (Version 3)
Quarter: 2015Q3

REPORT INFORMATION
  Report Type: Spontaneous
  Country: US (occurrence: US)
  Receive Date: 20140106
  Receipt Date: 20150806
  Transmission Date: 20151125
  Serious: No
  Sender: FDA-Public Use
  Company Number: US-GILEAD-2010-0029748

PATIENT
  Age: 58 Year
  Sex: Female

DRUGS (18)
  1. REVATIO [Concomitant]
     Active Substance: SILDENAFIL CITRATE
  2. FLOVENT [Concomitant]
     Active Substance: FLUTICASONE PROPIONATE
  3. METFORMIN [Concomitant]
     Active Substance: METFORMIN HYDROCHLORIDE
  4. ALLOPURINOL. [Concomitant]
     Active Substance: ALLOPURINOL
  5. HYDROCODONE/ APAP [Concomitant]
     Active Substance: ACETAMINOPHEN\HYDROCODONE
  6. VYTORIN [Concomitant]
     Active Substance: EZETIMIBE\SIMVASTATIN
  7. TORSEMIDE. [Concomitant]
     Active Substance: TORSEMIDE
  8. ADVAIR HFA [Concomitant]
     Active Substance: FLUTICASONE PROPIONATE\SALMETEROL XINAFOATE
  9. ASPIRIN. [Concomitant]
     Active Substance: ASPIRIN
  10. POTASSIUM [Concomitant]
     Active Substance: POTASSIUM
  11. LETAIRIS [Suspect]
     Active Substance: AMBRISENTAN
     Indication: PULMONARY ARTERIAL HYPERTENSION
     Route: 048
     Dates: start: 20100607
  12. MAGNESIUM [Concomitant]
     Active Substance: MAGNESIUM
  13. SERTRALINE [Concomitant]
     Active Substance: SERTRALINE HYDROCHLORIDE
  14. NOVOLIN R [Concomitant]
     Active Substance: INSULIN HUMAN
  15. FOSINOPRIL [Concomitant]
     Active Substance: FOSINOPRIL
  16. OMEPRAZOLE. [Concomitant]
     Active Substance: OMEPRAZOLE
  17. CLONAZEPAM. [Concomitant]
     Active Substance: CLONAZEPAM
  18. LANTUS [Concomitant]
     Active Substance: INSULIN GLARGINE

REACTIONS (2)
  - Fluid retention [Not Recovered/Not Resolved]
  - Oedema peripheral [Recovering/Resolving]
